FAERS Safety Report 7137238-9 (Version None)
Quarter: 2010Q4

REPORT INFORMATION
  Report Type: 
  Country: None (occurrence: None)
  Receive Date: 20101119
  Receipt Date: 20100905
  Transmission Date: 20110411
  Serious: Yes (Death)
  Sender: FDA-Public Use
  Company Number: DSA_44258_2010

PATIENT
  Sex: Female

DRUGS (2)
  1. XENAZINE [Suspect]
     Indication: HUNTINGTON'S DISEASE
     Dosage: (25 MG BID ORAL), (25 MG TWICE DAILY AND 12.5 MG EVERY AFTERNOON ORAL)
     Route: 048
     Dates: start: 20090129
  2. XENAZINE [Suspect]
     Indication: HUNTINGTON'S DISEASE
     Dosage: (25 MG BID ORAL), (25 MG TWICE DAILY AND 12.5 MG EVERY AFTERNOON ORAL)
     Route: 048
     Dates: start: 20091008

REACTIONS (1)
  - DEATH [None]
